FAERS Safety Report 8643570 (Version 4)
Quarter: 2013Q2

REPORT INFORMATION
  Report Type: Spontaneous
  Country: US (occurrence: None)
  Receive Date: 20120618
  Receipt Date: 20130606
  Transmission Date: 20140414
  Serious: Yes (Hospitalization, Other)
  Sender: FDA-Public Use
  Company Number: 2012-2209

PATIENT
  Age: 7 Year
  Sex: Male
  Weight: 13 kg

DRUGS (3)
  1. INCRELEX [Suspect]
     Indication: PRIMARY INSULIN LIKE GROWTH FACTOR-1 DEFICIENCY
     Dosage: 76.92 UG/KG (38.46 UG/KG,2 IN 1 D)
     Dates: start: 20100323
  2. ALBUTEROL (SALBUTEROL) [Concomitant]
  3. QVAR [Concomitant]

REACTIONS (3)
  - Tonsillar hypertrophy [None]
  - Adenoidal hypertrophy [None]
  - Pneumonia [None]
